FAERS Safety Report 5097418-3 (Version None)
Quarter: 2006Q3

REPORT INFORMATION
  Report Type: 
  Country: None (occurrence: None)
  Receive Date: 20060905
  Receipt Date: 20060816
  Transmission Date: 20061208
  Serious: Yes (Other)
  Sender: FDA-Public Use
  Company Number: 2005BH002380

PATIENT
  Sex: Female

DRUGS (1)
  1. TISSEEL VH KIT [Suspect]
     Indication: FACE LIFT

REACTIONS (3)
  - JAW DISORDER [None]
  - POST PROCEDURAL COMPLICATION [None]
  - SKIN INDURATION [None]
